FAERS Safety Report 9043473 (Version 1)
Quarter: 2013Q1

REPORT INFORMATION
  Report Type: Report from Study
  Country: US (occurrence: US)
  Receive Date: 20130129
  Receipt Date: 20130129
  Transmission Date: 20140127
  Serious: No
  Sender: FDA-Public Use
  Company Number: US-ABBOTT-12P-163-0914436-00

PATIENT
  Age: 43 Year
  Sex: Female

DRUGS (1)
  1. HUMIRA 40 MG/ 0.8 ML PRE-FILLED SYRINGE [Suspect]
     Indication: RHEUMATOID ARTHRITIS
     Dates: start: 201108

REACTIONS (5)
  - Injection site reaction [Unknown]
  - Injection site erythema [Unknown]
  - Injection site pruritus [Unknown]
  - Localised oedema [Unknown]
  - Product quality issue [Unknown]
